FAERS Safety Report 25957264 (Version 1)
Quarter: 2025Q4

REPORT INFORMATION
  Report Type: Spontaneous
  Country: EU (occurrence: EU)
  Receive Date: 20251024
  Receipt Date: 20251024
  Transmission Date: 20260117
  Serious: Yes (Hospitalization, Other)
  Sender: PFIZER
  Company Number: EU-ROCHE-10000403441

PATIENT
  Age: 49 Year
  Sex: Female
  Weight: 82.9 kg

DRUGS (4)
  1. TRASTUZUMAB [Suspect]
     Active Substance: TRASTUZUMAB
     Dosage: 499 MG, EVERY 3 WEEKS
     Route: 042
     Dates: start: 20241115, end: 20241226
  2. ATEZOLIZUMAB [Suspect]
     Active Substance: ATEZOLIZUMAB
     Indication: Breast cancer metastatic
     Dosage: 1200 MG, EVERY 3 WEEKS
     Route: 042
     Dates: start: 20241115, end: 20241226
  3. VINORELBINE [Suspect]
     Active Substance: VINORELBINE TARTRATE
     Indication: Breast cancer metastatic
     Dosage: 150 MG, FREQ:7 D;7 DAY
     Route: 048
     Dates: start: 20241115, end: 20241226
  4. ENALAPRIL [Concomitant]
     Active Substance: ENALAPRIL
     Indication: Hypertension
     Dosage: 10 MG, 1X/DAY
     Route: 048
     Dates: start: 20241115

REACTIONS (1)
  - Hyperglycaemia [Not Recovered/Not Resolved]

NARRATIVE: CASE EVENT DATE: 20241226
